FAERS Safety Report 6284350-2 (Version None)
Quarter: 2009Q3

REPORT INFORMATION
  Report Type: 
  Country: None (occurrence: None)
  Receive Date: 20090727
  Receipt Date: 20090721
  Transmission Date: 20100115
  Serious: Yes (Other)
  Sender: FDA-Public Use
  Company Number: CH-AMGEN-US354222

PATIENT

DRUGS (1)
  1. ENBREL [Suspect]
     Indication: JUVENILE ARTHRITIS
     Dosage: DOSE AND FREQUENCY UNKNOWN, FROM AN UNKNOWN DATE TO 2009
     Route: 065
     Dates: end: 20090101

REACTIONS (1)
  - ULCER [None]
